FAERS Safety Report 6034624-5 (Version None)
Quarter: 2009Q1

REPORT INFORMATION
  Report Type: 
  Country: None (occurrence: None)
  Receive Date: 20090109
  Receipt Date: 20090109
  Transmission Date: 20090719
  Serious: No
  Sender: FDA-Public Use
  Company Number: None

PATIENT
  Age: 58 Year
  Sex: Female
  Weight: 131.5431 kg

DRUGS (1)
  1. LEVAQUIN [Suspect]
     Indication: BRONCHITIS
     Dosage: ONE PILL EVERY 24 HRS
     Dates: start: 20080105, end: 20080107

REACTIONS (9)
  - AGITATION [None]
  - ANXIETY [None]
  - ARTHRALGIA [None]
  - BONE PAIN [None]
  - CRYING [None]
  - DEPRESSION [None]
  - HEADACHE [None]
  - INSOMNIA [None]
  - LETHARGY [None]
